FAERS Safety Report 14210287 (Version 1)
Quarter: 2017Q4

REPORT INFORMATION
  Report Type: Report from Study
  Country: CN (occurrence: CN)
  Receive Date: 20171121
  Receipt Date: 20171121
  Transmission Date: 20180321
  Serious: Yes (Other)
  Sender: FDA-Public Use
  Company Number: CN-MYLANLABS-2017M1073239

PATIENT
  Age: 31 Year
  Sex: Male
  Weight: 62 kg

DRUGS (7)
  1. PREDNISOLONE. [Suspect]
     Active Substance: PREDNISOLONE
     Dosage: 100 MG/DAY FOR 3 DAYS, THEN REDUCED TO 20 TIMES 0200A MG/DAY
     Route: 065
  2. MYCOPHENOLATE MOFETIL. [Concomitant]
     Active Substance: MYCOPHENOLATE MOFETIL
     Indication: IMMUNOSUPPRESSANT DRUG THERAPY
     Dosage: 500MG DAILY FOR 3 DAYS, AND THEN 1 G/DAY
     Route: 065
  3. MYCOPHENOLATE MOFETIL. [Concomitant]
     Active Substance: MYCOPHENOLATE MOFETIL
     Dosage: 1 G/DAY
     Route: 065
  4. PREDNISOLONE. [Suspect]
     Active Substance: PREDNISOLONE
     Indication: IMMUNOSUPPRESSANT DRUG THERAPY
     Dosage: 250MG DIRECTLY AFTER TRANSPLANT, FOLLOWED BY 100 MG/DAY FOR 3 DAYS
     Route: 065
  5. PREDNISOLONE. [Suspect]
     Active Substance: PREDNISOLONE
     Dosage: 20 TIMES 0200A MG/DAY [SIC]
     Route: 065
  6. TACROLIMUS. [Suspect]
     Active Substance: TACROLIMUS
     Indication: IMMUNOSUPPRESSANT DRUG THERAPY
     Dosage: 0.1 MG/KG/DAY FOLLOWED BY MAINTAINING TARGET TROUGH LEVEL OF 7 TO 12 NG/ML IN THE FIRST MONTH
     Route: 065
  7. POTASSIUM SODIUM HYDROGEN CITRATE [Suspect]
     Active Substance: POTASSIUM SODIUM HYDROGEN CITRATE
     Indication: RENAL LITHIASIS PROPHYLAXIS
     Dosage: 10 G/DAY
     Route: 048

REACTIONS (1)
  - Hyperkalaemia [Recovered/Resolved]
